FAERS Safety Report 15679041 (Version 7)
Quarter: 2019Q2

REPORT INFORMATION
  Report Type: Report from Study
  Country: FR (occurrence: FR)
  Receive Date: 20181203
  Receipt Date: 20190411
  Transmission Date: 20190711
  Serious: Yes (Hospitalization, Other)
  Sender: FDA-Public Use
  Company Number: FR-BRISTOL-MYERS SQUIBB COMPANY-BMS-2018-111763

PATIENT
  Age: 64 Year
  Sex: Female
  Weight: 115 kg

DRUGS (4)
  1. TEMERIT [Concomitant]
     Active Substance: NEBIVOLOL
     Indication: HYPERTENSION
     Dosage: UNK
     Route: 048
     Dates: start: 20171005
  2. NIVOLUMAB [Suspect]
     Active Substance: NIVOLUMAB
     Indication: ENDOMETRIAL ADENOCARCINOMA
     Dosage: LAST DOSE ADMINISTARTED BEFORE SAE 240MG
     Route: 042
     Dates: start: 20170907, end: 20181107
  3. COZAAR [Concomitant]
     Active Substance: LOSARTAN POTASSIUM
     Indication: HYPERTENSION
     Dosage: UNK
     Route: 048
  4. TOPALGIC                           /00599202/ [Concomitant]
     Active Substance: TRAMADOL HYDROCHLORIDE
     Indication: ARTHRALGIA
     Dosage: UNK
     Route: 048

REACTIONS (3)
  - Chest pain [Recovered/Resolved]
  - Pulmonary hypertension [Not Recovered/Not Resolved]
  - Cardiac failure acute [Unknown]

NARRATIVE: CASE EVENT DATE: 20181122
